FAERS Safety Report 6788935-6 (Version None)
Quarter: 2010Q2

REPORT INFORMATION
  Report Type: 
  Country: None (occurrence: None)
  Receive Date: 20100623
  Receipt Date: 20080610
  Transmission Date: 20101027
  Serious: Yes (Other)
  Sender: FDA-Public Use
  Company Number: US-PFIZER INC-2008049737

PATIENT
  Age: 8 Year

DRUGS (3)
  1. GEODON [Suspect]
     Dates: start: 20080101, end: 20080101
  2. ALL OTHER THERAPEUTIC PRODUCTS [Concomitant]
  3. ABILIFY [Concomitant]

REACTIONS (1)
  - DYSKINESIA [None]
